FAERS Safety Report 13454950 (Version 5)
Quarter: 2018Q4

REPORT INFORMATION
  Report Type: Report from Study
  Country: US (occurrence: US)
  Receive Date: 20170419
  Receipt Date: 20181112
  Transmission Date: 20190204
  Serious: Yes (Death)
  Sender: FDA-Public Use
  Company Number: PHEH2017US011263

PATIENT
  Age: 59 Year
  Sex: Female

DRUGS (1)
  1. GLEEVEC [Suspect]
     Active Substance: IMATINIB MESYLATE
     Indication: GASTROINTESTINAL STROMAL TUMOUR
     Dosage: UNK
     Route: 065
     Dates: start: 201603

REACTIONS (6)
  - Malignant neoplasm progression [Fatal]
  - Malaise [Unknown]
  - Gastrointestinal stromal tumour [Fatal]
  - Drug ineffective [Unknown]
  - Feeling abnormal [Unknown]
  - Product prescribing error [Unknown]

NARRATIVE: CASE EVENT DATE: 20160710
